FAERS Safety Report 6600264-X (Version None)
Quarter: 2010Q1

REPORT INFORMATION
  Report Type: 
  Country: None (occurrence: None)
  Receive Date: 20100217
  Receipt Date: 20100127
  Transmission Date: 20100710
  Serious: Yes (Other)
  Sender: FDA-Public Use
  Company Number: 1-21503414

PATIENT
  Age: 62 Year
  Sex: Male

DRUGS (6)
  1. BACTRIM [Suspect]
     Indication: URINARY TRACT INFECTION
     Dosage: ORAL
     Route: 048
  2. MOXIFLOXACIN HCL [Concomitant]
  3. FLAGYL [Concomitant]
  4. MEDROL [Concomitant]
  5. INTRAVENOUS CORTICOSTEROIDS [Concomitant]
  6. H1 AND H2 BLOCKERS [Concomitant]

REACTIONS (4)
  - ANGIOEDEMA [None]
  - CONDITION AGGRAVATED [None]
  - LINEAR IGA DISEASE [None]
  - URTICARIA CHRONIC [None]
